FAERS Safety Report 6626636-5 (Version None)
Quarter: 2010Q1

REPORT INFORMATION
  Report Type: 
  Country: None (occurrence: None)
  Receive Date: 20100309
  Receipt Date: 20100309
  Transmission Date: 20100710
  Serious: Yes (Hospitalization)
  Sender: FDA-Public Use
  Company Number: None

PATIENT
  Sex: Male
  Weight: 11.6 kg

DRUGS (3)
  1. CARBOPLATIN [Suspect]
     Dosage: 600 MG
  2. ETOPOSIDE [Suspect]
     Dosage: 480 MG
  3. MELPHALAN HYDROCHLORIDE [Suspect]
     Dosage: 72 MG

REACTIONS (14)
  - AORTIC DILATATION [None]
  - BRAIN NATRIURETIC PEPTIDE INCREASED [None]
  - CLOSTRIDIAL INFECTION [None]
  - FLUID OVERLOAD [None]
  - GENERAL PHYSICAL HEALTH DETERIORATION [None]
  - HYPERTENSION [None]
  - LEFT VENTRICULAR DYSFUNCTION [None]
  - LEFT VENTRICULAR HYPERTROPHY [None]
  - MENTAL STATUS CHANGES [None]
  - PLEURAL EFFUSION [None]
  - PULMONARY OEDEMA [None]
  - PYREXIA [None]
  - RESPIRATORY FAILURE [None]
  - TACHYCARDIA [None]
